FAERS Safety Report 13646405 (Version 1)
Quarter: 2017Q2

REPORT INFORMATION
  Report Type: Report from Study
  Country: BR (occurrence: BR)
  Receive Date: 20170613
  Receipt Date: 20170613
  Transmission Date: 20170830
  Serious: Yes (Other)
  Sender: FDA-Public Use
  Company Number: BR-UCBSA-2017022777

PATIENT
  Age: 64 Year
  Sex: Female

DRUGS (2)
  1. LEVETIRACETAM. [Suspect]
     Active Substance: LEVETIRACETAM
     Indication: OFF LABEL USE
  2. LEVETIRACETAM. [Suspect]
     Active Substance: LEVETIRACETAM
     Indication: ANEURYSM
     Dosage: 500 MG, 2X/DAY (BID), FILM-COATED TABLET
     Dates: start: 20161001

REACTIONS (2)
  - Aneurysm repair [Unknown]
  - Off label use [Unknown]

NARRATIVE: CASE EVENT DATE: 20161001
